FAERS Safety Report 5163316-X (Version None)
Quarter: 2006Q4

REPORT INFORMATION
  Report Type: 
  Country: None (occurrence: None)
  Receive Date: 20061121
  Receipt Date: 20061111
  Transmission Date: 20070319
  Serious: Yes (Other)
  Sender: FDA-Public Use
  Company Number: 2006140884

PATIENT
  Sex: Male

DRUGS (1)
  1. UNISOM [Suspect]
     Dosage: 15 PILLS AT ONCE, ORAL
     Route: 048
     Dates: start: 20061111, end: 20061111

REACTIONS (1)
  - UNEVALUABLE EVENT [None]
